FAERS Safety Report 15440599 (Version 1)
Quarter: 2018Q3

REPORT INFORMATION
  Report Type: Spontaneous
  Country: US (occurrence: US)
  Receive Date: 20180928
  Receipt Date: 20180928
  Transmission Date: 20181010
  Serious: No
  Sender: FDA-Public Use
  Company Number: US-NOVOPROD-605619

PATIENT
  Age: 57 Year
  Sex: Female
  Weight: 90.7 kg

DRUGS (2)
  1. OZEMPIC [Suspect]
     Active Substance: SEMAGLUTIDE
     Dosage: WEEKLY
     Route: 030
     Dates: start: 201806, end: 20180604
  2. OZEMPIC [Suspect]
     Active Substance: SEMAGLUTIDE
     Indication: DIABETES MELLITUS
     Dosage: WEEKLY
     Route: 030
     Dates: start: 20180602, end: 201806

REACTIONS (6)
  - Incorrect route of drug administration [Recovered/Resolved]
  - Drug titration error [Recovered/Resolved]
  - Vomiting [Recovered/Resolved]
  - Nausea [Recovered/Resolved]
  - Dyspepsia [Recovered/Resolved]
  - Abdominal pain [Recovered/Resolved]

NARRATIVE: CASE EVENT DATE: 20180602
